FAERS Safety Report 7586218-8 (Version None)
Quarter: 2011Q2

REPORT INFORMATION
  Report Type: 
  Country: None (occurrence: None)
  Receive Date: 20110630
  Receipt Date: 20110630
  Transmission Date: 20111010
  Serious: Yes (Other)
  Sender: FDA-Public Use
  Company Number: None

PATIENT
  Age: 9 Year
  Sex: Male

DRUGS (2)
  1. FORMOTEROL FUMARATE [Suspect]
     Dosage: FORMOTEROL 4.5UG/PUFF 2 PUFFS BID INHALED
     Route: 055
  2. BUDESONIDE [Suspect]
     Indication: ASTHMA
     Dosage: BUDESONIDE 160UG/PUFF 2 PUFFS BID INHALED
     Route: 055
     Dates: start: 20100901, end: 20101001

REACTIONS (7)
  - AGITATION [None]
  - CRYING [None]
  - SUICIDAL IDEATION [None]
  - ANGER [None]
  - INSOMNIA [None]
  - PRESSURE OF SPEECH [None]
  - SCREAMING [None]
